FAERS Safety Report 9734552 (Version 3)
Quarter: 2014Q2

REPORT INFORMATION
  Report Type: Report from Study
  Country: US (occurrence: US)
  Receive Date: 20131206
  Receipt Date: 20140527
  Transmission Date: 20141212
  Serious: Yes (Hospitalization, Other)
  Sender: FDA-Public Use
  Company Number: US-IPSEN BIOPHARMACEUTICALS, INC.-2013-2412

PATIENT
  Age: 41 Year
  Sex: Male
  Weight: 74 kg

DRUGS (7)
  1. SOMATULINE DEPOT INJECTION (60MG) [Suspect]
     Indication: ACROMEGALY
     Dosage: 60 MG
     Route: 058
     Dates: start: 20130531, end: 20130531
  2. VITAMIN C [Concomitant]
     Indication: PRODUCT USED FOR UNKNOWN INDICATION
     Dosage: NOT REPORTED
     Route: 065
  3. VITAMIN D [Concomitant]
     Indication: PRODUCT USED FOR UNKNOWN INDICATION
     Dosage: NOT REPORTED
     Route: 065
  4. FISH OIL [Concomitant]
     Indication: PRODUCT USED FOR UNKNOWN INDICATION
     Dosage: NOT REPORTED
     Route: 065
  5. FLAX OIL [Concomitant]
     Indication: PRODUCT USED FOR UNKNOWN INDICATION
     Dosage: NOT REPORTED
     Route: 065
  6. B COMPLEX VITAMIN [Concomitant]
     Indication: PRODUCT USED FOR UNKNOWN INDICATION
     Dosage: NOT REPORTED
     Route: 065
  7. OCTREOTIDE [Concomitant]
     Indication: PRODUCT USED FOR UNKNOWN INDICATION
     Dosage: NOT REPORTED
     Route: 065

REACTIONS (8)
  - Pancreatitis [Unknown]
  - Cholelithiasis [Unknown]
  - Biliary colic [Not Recovered/Not Resolved]
  - Insulin-like growth factor increased [Unknown]
  - Blood growth hormone increased [Unknown]
  - Fall [Recovered/Resolved with Sequelae]
  - Faeces discoloured [Recovered/Resolved]
  - Constipation [Recovered/Resolved]
